APPROVED DRUG PRODUCT: GLUCAGON
Active Ingredient: GLUCAGON
Strength: 1MG/VIAL **Federal Register determination that product was not discontinued or withdrawn for safety or effectiveness reasons**
Dosage Form/Route: INJECTABLE;INJECTION
Application: N020928 | Product #001
Applicant: ELI LILLY AND CO
Approved: Sep 11, 1998 | RLD: Yes | RS: No | Type: DISCN